FAERS Safety Report 23515721 (Version 1)
Quarter: 2024Q1

REPORT INFORMATION
  Report Type: Spontaneous
  Country: JP (occurrence: JP)
  Receive Date: 20240213
  Receipt Date: 20240213
  Transmission Date: 20240410
  Serious: Yes (Hospitalization)
  Sender: FDA-Public Use
  Company Number: JP-HEXAL-SDZ2023JP013515AA

PATIENT
  Age: 43 Year
  Sex: Female

DRUGS (2)
  1. INFLIXIMAB [Suspect]
     Active Substance: INFLIXIMAB
     Indication: Rheumatoid arthritis
     Dosage: 150 MG/DAY EVERY 8 WEEKS
     Route: 065
  2. METHOTREXATE [Suspect]
     Active Substance: METHOTREXATE
     Indication: Rheumatoid arthritis
     Dosage: 8 MG, QW
     Route: 065

REACTIONS (3)
  - Henoch-Schonlein purpura [Unknown]
  - Renal disorder [Unknown]
  - Skin lesion [Unknown]
